FAERS Safety Report 25901215 (Version 1)
Quarter: 2025Q4

REPORT INFORMATION
  Report Type: Spontaneous
  Country: JP (occurrence: JP)
  Receive Date: 20251009
  Receipt Date: 20251009
  Transmission Date: 20260117
  Serious: Yes (Life-Threatening, Other)
  Sender: PFIZER
  Company Number: JP-PFIZER INC-PV202500116874

PATIENT
  Age: 1 Year
  Sex: Female

DRUGS (3)
  1. LORAZEPAM [Suspect]
     Active Substance: LORAZEPAM
     Dosage: 2 MG/KG, DAILY
  2. LORAZEPAM [Suspect]
     Active Substance: LORAZEPAM
     Dosage: 0.5 MG/KG, DAILY
  3. LORAZEPAM [Suspect]
     Active Substance: LORAZEPAM
     Dosage: 1.8 MG/KG, 3X/DAY

REACTIONS (3)
  - Respiratory depression [Unknown]
  - Drug effective for unapproved indication [Unknown]
  - Off label use [Unknown]
